FAERS Safety Report 12408941 (Version 1)
Quarter: 2016Q2

REPORT INFORMATION
  Report Type: Spontaneous
  Country: US (occurrence: US)
  Receive Date: 20160526
  Receipt Date: 20160526
  Transmission Date: 20160815
  Serious: Yes (Life-Threatening, Other)
  Sender: FDA-Public Use
  Company Number: US-GLAXOSMITHKLINE-US2016GSK075083

PATIENT

DRUGS (2)
  1. ARNUITY ELLIPTA [Suspect]
     Active Substance: FLUTICASONE FUROATE
     Indication: PNEUMONITIS
     Dosage: 100 MCG 2 PUFF(S), QD
  2. PULMICORT TURBUHALER [Suspect]
     Active Substance: BUDESONIDE
     Indication: PNEUMONITIS
     Dosage: 180 MCG 2 PUFF(S), BID

REACTIONS (8)
  - Pneumonitis [Unknown]
  - Off label use [Unknown]
  - Condition aggravated [Unknown]
  - Drug dose omission [Unknown]
  - Device use error [Unknown]
  - Respiratory distress [Unknown]
  - Underdose [Unknown]
  - Prescribed overdose [Unknown]
